FAERS Safety Report 5675957-1 (Version None)
Quarter: 2008Q1

REPORT INFORMATION
  Report Type: 
  Country: None (occurrence: None)
  Receive Date: 20080321
  Receipt Date: 20080318
  Transmission Date: 20080703
  Serious: Yes (Other)
  Sender: FDA-Public Use
  Company Number: BR-ASTRAZENECA-2008UW05129

PATIENT
  Age: 49 Year
  Sex: Female
  Weight: 53 kg

DRUGS (3)
  1. ARIMIDEX [Suspect]
     Indication: BREAST CANCER
     Route: 048
     Dates: start: 20050701
  2. TAMOXIFEN CITRATE [Concomitant]
     Indication: BREAST CANCER
     Route: 048
     Dates: start: 20030801, end: 20050701
  3. CALCIUM [Concomitant]
     Indication: OSTEOPENIA

REACTIONS (12)
  - ALOPECIA [None]
  - ATROPHY [None]
  - ENDOMETRIAL DISORDER [None]
  - HAIR TEXTURE ABNORMAL [None]
  - IMPAIRED HEALING [None]
  - LIBIDO DECREASED [None]
  - NAIL DISORDER [None]
  - OSTEOPENIA [None]
  - OVARIAN ATROPHY [None]
  - UTERINE DISORDER [None]
  - VAGINAL PAIN [None]
  - VULVOVAGINAL DRYNESS [None]
